FAERS Safety Report 21615316 (Version 1)
Quarter: 2022Q4

REPORT INFORMATION
  Report Type: Spontaneous
  Country: DE (occurrence: DE)
  Receive Date: 20221118
  Receipt Date: 20221118
  Transmission Date: 20230113
  Serious: Yes (Life-Threatening, Hospitalization, Other)
  Sender: FDA-Public Use
  Company Number: DE-ADRED-08335-01

PATIENT
  Age: 79 Year
  Sex: Male

DRUGS (15)
  1. PAROXETINE [Suspect]
     Active Substance: PAROXETINE
     Indication: Product used for unknown indication
     Dosage: 20 MILLIGRAM (20 MG, 1-0-0-0)
     Route: 048
  2. ASPIRIN [Suspect]
     Active Substance: ASPIRIN
     Indication: Product used for unknown indication
     Dosage: 100 MILLIGRAM (100 MG, 1-0-0-0)
     Route: 048
  3. METFORMIN HYDROCHLORIDE\SITAGLIPTIN [Concomitant]
     Active Substance: METFORMIN HYDROCHLORIDE\SITAGLIPTIN
     Dosage: 1000|50 MG, 1-0-1-0
     Route: 048
  4. DOXEPIN 1 A PHARMA [Concomitant]
     Dosage: 50 MILLIGRAM (50 MG, 0-0-0-1)
     Route: 048
  5. METAMIZOL [Concomitant]
     Active Substance: METAMIZOLE SODIUM
     Dosage: 500 MILLIGRAM (500 MG, EVERY FOUR HOURS IF REQUIRED, BUT NO MORE THAN FOUR TIMES)
     Route: 048
  6. LANTUS SOLOSTAR [Concomitant]
     Active Substance: INSULIN GLARGINE
     Dosage: 0-0-0-40
     Route: 058
  7. REPAGLINIDE [Concomitant]
     Active Substance: REPAGLINIDE
     Dosage: 2 MILLIGRAM (2 MG, 1-1-1-0)
     Route: 048
  8. IBUPROFEN [Concomitant]
     Active Substance: IBUPROFEN
     Dosage: 600 MILLIGRAM (600 MG, 0-0-0-0.5)
     Route: 048
  9. NOVORAPID [Concomitant]
     Active Substance: INSULIN ASPART
     Dosage: 24-8-30-0
     Route: 058
  10. TORSEMIDE [Concomitant]
     Active Substance: TORSEMIDE
     Dosage: 5 MILLIGRAM (5 MG, 2-0-0-0)
     Route: 048
  11. AMLODIPINE, VALSARTAN, HYDROCHLOROTHIAZIDE [Concomitant]
     Active Substance: AMLODIPINE BESYLATE\HYDROCHLOROTHIAZIDE\VALSARTAN
     Dosage: 5|12.5|160 MG, 1-0-0-0
     Route: 048
  12. ATORVASTATIN [Concomitant]
     Active Substance: ATORVASTATIN
     Dosage: 10 MILLIGRAM (10 MG, 0-0-0.5-0)
     Route: 048
  13. DAPAGLIFLOZIN [Concomitant]
     Active Substance: DAPAGLIFLOZIN
     Dosage: 10 MILLIGRAM (10 MG, 1-0-0-0)
     Route: 048
  14. METHOCARBAMOL [Concomitant]
     Active Substance: METHOCARBAMOL
     Dosage: 750 MILLIGRAM (750 MG, 0.5-0-0.5-0)
     Route: 048
  15. PREGABALIN [Concomitant]
     Active Substance: PREGABALIN
     Dosage: 50 MILLIGRAM (50 MG, 0-0-1-0)
     Route: 048

REACTIONS (2)
  - Fall [Unknown]
  - Subgaleal haematoma [Unknown]

NARRATIVE: CASE EVENT DATE: 20210630
